FAERS Safety Report 23267296 (Version 1)
Quarter: 2023Q4

REPORT INFORMATION
  Report Type: Spontaneous
  Country: CN (occurrence: CN)
  Receive Date: 20231206
  Receipt Date: 20231206
  Transmission Date: 20240110
  Serious: Yes (Disabling)
  Sender: FDA-Public Use
  Company Number: CN-PFIZER INC-PV202300195453

PATIENT
  Age: 85 Year
  Sex: Male
  Weight: 60 kg

DRUGS (6)
  1. TIGECYCLINE [Suspect]
     Active Substance: TIGECYCLINE
     Indication: Anti-infective therapy
     Dosage: 50 MG, 2X/DAY
     Route: 041
     Dates: start: 20231114, end: 20231124
  2. TIGECYCLINE [Suspect]
     Active Substance: TIGECYCLINE
     Indication: Pneumonia
  3. FOSFOMYCIN SODIUM [Suspect]
     Active Substance: FOSFOMYCIN SODIUM
     Indication: Anti-infective therapy
     Dosage: 2 G, 2X/DAY
     Route: 041
     Dates: start: 20231114, end: 20231122
  4. FOSFOMYCIN SODIUM [Suspect]
     Active Substance: FOSFOMYCIN SODIUM
     Indication: Pneumonia
  5. DEXTROSE [Concomitant]
     Active Substance: DEXTROSE\DEXTROSE MONOHYDRATE
     Dosage: EVERY 12 HOURS
     Route: 041
  6. SODIUM CHLORIDE [Concomitant]
     Active Substance: SODIUM CHLORIDE
     Dosage: EVERY 12 HOURS
     Route: 041

REACTIONS (2)
  - Renal impairment [Not Recovered/Not Resolved]
  - Condition aggravated [Not Recovered/Not Resolved]

NARRATIVE: CASE EVENT DATE: 20231122
